FAERS Safety Report 14166734 (Version 1)
Quarter: 2017Q4

REPORT INFORMATION
  Report Type: Spontaneous
  Country: US (occurrence: US)
  Receive Date: 20171107
  Receipt Date: 20171107
  Transmission Date: 20180321
  Serious: No
  Sender: FDA-Public Use
  Company Number: US-BAUSCH-BL-2017-019742

PATIENT
  Age: 54 Year
  Sex: Female

DRUGS (2)
  1. ZIRGAN [Suspect]
     Active Substance: GANCICLOVIR
     Route: 047
     Dates: start: 2017
  2. ZIRGAN [Suspect]
     Active Substance: GANCICLOVIR
     Indication: EYE INFECTION
     Dosage: 1 DROP INTO THE LEFT EYE 5 TIMES PER DAY FOR 1 WEEK, INSTILLED IN HER LEFT EYE
     Route: 047
     Dates: start: 2014

REACTIONS (4)
  - Unevaluable event [Recovered/Resolved]
  - Drug ineffective [Unknown]
  - Expired product administered [Unknown]
  - Drug prescribing error [Unknown]

NARRATIVE: CASE EVENT DATE: 20170617
